FAERS Safety Report 13108748 (Version 1)
Quarter: 2017Q1

REPORT INFORMATION
  Report Type: Spontaneous
  Country: US (occurrence: US)
  Receive Date: 20170112
  Receipt Date: 20170112
  Transmission Date: 20170509
  Serious: Yes (Life-Threatening, Hospitalization)
  Sender: FDA-Public Use
  Company Number: None

PATIENT
  Age: 70 Year
  Sex: Male
  Weight: 60.5 kg

DRUGS (1)
  1. CETUXIMAB. [Suspect]
     Active Substance: CETUXIMAB
     Indication: TONSIL CANCER
     Route: 042
     Dates: start: 20161018, end: 20161018

REACTIONS (8)
  - Hyperhidrosis [None]
  - Vomiting [None]
  - Chest pain [None]
  - Nausea [None]
  - Lethargy [None]
  - Hypotension [None]
  - Angina pectoris [None]
  - Depressed level of consciousness [None]

NARRATIVE: CASE EVENT DATE: 20161018
